FAERS Safety Report 7109243-X (Version None)
Quarter: 2010Q4

REPORT INFORMATION
  Report Type: 
  Country: None (occurrence: None)
  Receive Date: 20101117
  Receipt Date: 20101022
  Transmission Date: 20110411
  Serious: Yes (Other)
  Sender: FDA-Public Use
  Company Number: JP-AMGEN-JPNCT2010001064

PATIENT

DRUGS (6)
  1. ETANERCEPT [Suspect]
     Indication: RHEUMATOID ARTHRITIS
     Dosage: 25 MG, 2 TIMES/WK
     Dates: start: 20080527, end: 20080704
  2. ETANERCEPT [Suspect]
     Dosage: 25 MG, 2 TIMES/WK
     Dates: start: 20080708
  3. MOBIC [Concomitant]
     Indication: RHEUMATOID ARTHRITIS
     Dosage: UNKNOWN
     Route: 048
  4. PREDNISOLONE [Concomitant]
     Indication: RHEUMATOID ARTHRITIS
     Route: 048
     Dates: start: 20081104
  5. METHOTREXATE [Concomitant]
     Indication: RHEUMATOID ARTHRITIS
     Dosage: UNKNOWN
     Route: 048
     Dates: start: 20071218
  6. TACROLIMUS [Concomitant]
     Dosage: UNKNOWN
     Route: 052

REACTIONS (2)
  - ANKLE FRACTURE [None]
  - CHEST X-RAY ABNORMAL [None]
